FAERS Safety Report 8587069-8 (Version None)
Quarter: 2012Q3

REPORT INFORMATION
  Report Type: 
  Country: None (occurrence: None)
  Receive Date: 20120810
  Receipt Date: 20120706
  Transmission Date: 20120928
  Serious: No
  Sender: FDA-Public Use
  Company Number: US-ASTRAZENECA-2012SE46430

PATIENT
  Age: 40 Year
  Sex: Male
  Weight: 105.2 kg

DRUGS (4)
  1. PRILOSEC [Suspect]
     Dosage: 40 MG TWICE A DAY
     Route: 048
     Dates: start: 20120601
  2. PRILOSEC [Suspect]
     Indication: GASTROOESOPHAGEAL REFLUX DISEASE
     Dosage: 20 MG TWICE A DAY
     Route: 048
     Dates: start: 20120301, end: 20120601
  3. DEPRESSION MEDICATION [Concomitant]
     Indication: DEPRESSION
     Route: 048
  4. ZANTAC [Concomitant]
     Indication: GASTROOESOPHAGEAL REFLUX DISEASE
     Route: 048

REACTIONS (2)
  - GASTROOESOPHAGEAL REFLUX DISEASE [None]
  - OFF LABEL USE [None]
